APPROVED DRUG PRODUCT: FUROSEMIDE
Active Ingredient: FUROSEMIDE
Strength: 10MG/ML
Dosage Form/Route: INJECTABLE;INJECTION
Application: A202747 | Product #001 | TE Code: AP
Applicant: BAXTER HEALTHCARE CORP
Approved: Jan 27, 2014 | RLD: No | RS: Yes | Type: RX